FAERS Safety Report 6696188-2 (Version None)
Quarter: 2010Q2

REPORT INFORMATION
  Report Type: 
  Country: None (occurrence: None)
  Receive Date: 20100426
  Receipt Date: 20100324
  Transmission Date: 20101027
  Serious: No
  Sender: FDA-Public Use
  Company Number: US-BAYER-201013589BCC

PATIENT
  Age: 68 Year
  Sex: Male
  Weight: 118 kg

DRUGS (4)
  1. ALEVE (CAPLET) [Suspect]
     Indication: MENISCUS LESION
     Dosage: TOTAL DAILY DOSE: 220 MG  UNIT DOSE: 220 MG
     Route: 048
     Dates: start: 20100301
  2. LISINOPRIL [Concomitant]
     Route: 065
  3. JANUVIA [Concomitant]
     Route: 065
  4. GLYBURIDE [Concomitant]
     Route: 065

REACTIONS (2)
  - HEADACHE [None]
  - OEDEMA PERIPHERAL [None]
